FAERS Safety Report 17889596 (Version 4)
Quarter: 2020Q3

REPORT INFORMATION
  Report Type: Spontaneous
  Country: IT (occurrence: IT)
  Receive Date: 20200612
  Receipt Date: 20200713
  Transmission Date: 20201103
  Serious: Yes (Death, Other)
  Sender: FDA-Public Use
  Company Number: IT-ROCHE-2617041

PATIENT
  Age: 59 Year
  Sex: Male

DRUGS (2)
  1. TOCILIZUMAB. [Suspect]
     Active Substance: TOCILIZUMAB
     Indication: CORONAVIRUS INFECTION
     Route: 042
  2. DEXAMETHASONE. [Suspect]
     Active Substance: DEXAMETHASONE
     Indication: ACUTE RESPIRATORY DISTRESS SYNDROME
     Route: 065

REACTIONS (4)
  - Septic shock [Fatal]
  - COVID-19 pneumonia [Unknown]
  - Off label use [Fatal]
  - Product use in unapproved indication [Fatal]

NARRATIVE: CASE EVENT DATE: 20200313
